FAERS Safety Report 5603802-9 (Version None)
Quarter: 2008Q1

REPORT INFORMATION
  Report Type: 
  Country: None (occurrence: None)
  Receive Date: 20080122
  Receipt Date: 20080113
  Transmission Date: 20080703
  Serious: Yes (Other)
  Sender: FDA-Public Use
  Company Number: 2008-00096

PATIENT
  Age: 63 Year
  Sex: Male
  Weight: 79.6 kg

DRUGS (1)
  1. VELCADE [Suspect]
     Indication: SQUAMOUS CELL CARCINOMA
     Dosage: 1.30 MG/M2, IV BOLUS
     Route: 040
     Dates: start: 20060307, end: 20060519

REACTIONS (6)
  - ABDOMINAL PAIN [None]
  - CONSTIPATION [None]
  - FATIGUE [None]
  - LETHARGY [None]
  - MALAISE [None]
  - TESTICULAR PAIN [None]
